FAERS Safety Report 9167850 (Version 1)
Quarter: 2013Q1

REPORT INFORMATION
  Report Type: Spontaneous
  Country: IT (occurrence: None)
  Receive Date: 20130307
  Receipt Date: 20130307
  Transmission Date: 20140127
  Serious: Yes (Hospitalization)
  Sender: FDA-Public Use
  Company Number: AUR-APL-2013-02036

PATIENT
  Age: 32 Year
  Sex: Male

DRUGS (1)
  1. AMOXICILLIN (AMOXICILLIN) [Suspect]
     Indication: INFLUENZA
     Dosage: (1 GM, 1 D), ORAL
     Route: 048
     Dates: start: 20120515, end: 20120515

REACTIONS (3)
  - Anaphylactic shock [None]
  - White blood cell count increased [None]
  - Syncope [None]
